FAERS Safety Report 14678887 (Version 1)
Quarter: 2018Q1

REPORT INFORMATION
  Report Type: Spontaneous
  Country: IT (occurrence: IT)
  Receive Date: 20180326
  Receipt Date: 20180326
  Transmission Date: 20180509
  Serious: Yes (Hospitalization)
  Sender: FDA-Public Use
  Company Number: IT-CIPLA LTD.-2018IT12260

PATIENT

DRUGS (4)
  1. ZARELIS [Suspect]
     Active Substance: VENLAFAXINE HYDROCHLORIDE
     Indication: SUICIDE ATTEMPT
     Dosage: 14 DF, IN TOTAL
     Route: 048
     Dates: start: 20170629, end: 20170629
  2. LEXOTAN [Suspect]
     Active Substance: BROMAZEPAM
     Indication: SUICIDE ATTEMPT
     Dosage: 1 DF, IN TOTAL
     Route: 048
     Dates: start: 20170629, end: 20170629
  3. TOPIRAMATE. [Suspect]
     Active Substance: TOPIRAMATE
     Indication: SUICIDE ATTEMPT
     Dosage: 60 DF, IN TOTAL
     Route: 048
     Dates: start: 20170629, end: 20170629
  4. LORAZEPAM. [Suspect]
     Active Substance: LORAZEPAM
     Indication: SUICIDE ATTEMPT
     Dosage: 10 DF, IN TOTAL
     Route: 048
     Dates: start: 20170629, end: 20170629

REACTIONS (2)
  - Extrapyramidal disorder [Recovering/Resolving]
  - Drug abuse [Recovering/Resolving]
